FAERS Safety Report 4974919-7 (Version None)
Quarter: 2006Q1

REPORT INFORMATION
  Report Type: 
  Country: None (occurrence: None)
  Receive Date: 20060227
  Receipt Date: 20051116
  Transmission Date: 20060701
  Serious: No
  Sender: FDA-Public Use
  Company Number: PHEH2005US12660

PATIENT
  Age: 71 Year
  Sex: Female

DRUGS (8)
  1. ENABLEX [Suspect]
     Indication: HYPERTONIC BLADDER
     Dosage: 7.5 MG, QD
     Dates: start: 20051101
  2. DIOVAN [Concomitant]
  3. ATIVAN [Concomitant]
  4. CARDIZEM LA/OLD FORM/ (DILTIAZEM) [Concomitant]
  5. PLAVIX [Concomitant]
  6. REMERON [Concomitant]
  7. FLONASE [Concomitant]
  8. FLOVENT [Concomitant]

REACTIONS (1)
  - ABDOMINAL PAIN UPPER [None]
